FAERS Safety Report 7207736-8 (Version None)
Quarter: 2011Q1

REPORT INFORMATION
  Report Type: 
  Country: None (occurrence: None)
  Receive Date: 20110103
  Receipt Date: 20101228
  Transmission Date: 20110831
  Serious: Yes (Other)
  Sender: FDA-Public Use
  Company Number: US-JNJFOC-20101208959

PATIENT
  Sex: Male
  Weight: 63.5 kg

DRUGS (1)
  1. RISPERDAL [Suspect]
     Indication: AUTISM
     Route: 048

REACTIONS (2)
  - FOREIGN BODY [None]
  - AREFLEXIA [None]
